FAERS Safety Report 12923188 (Version 1)
Quarter: 2016Q4

REPORT INFORMATION
  Report Type: Spontaneous
  Country: US (occurrence: US)
  Receive Date: 20161109
  Receipt Date: 20161109
  Transmission Date: 20170207
  Serious: No
  Sender: FDA-Public Use
  Company Number: US-GLAXOSMITHKLINE-US2016165165

PATIENT
  Sex: Female

DRUGS (1)
  1. EXCEDRIN MIGRAINE [Suspect]
     Active Substance: ACETAMINOPHEN\ASPIRIN\CAFFEINE
     Indication: HEADACHE
     Dosage: UNK, TOOK 2 PILLS IN MORNING, 2 PILLS IN AFTERNOON
     Route: 048
     Dates: start: 20161104

REACTIONS (3)
  - Intentional product use issue [Unknown]
  - Accidental overdose [Unknown]
  - Drug ineffective for unapproved indication [Unknown]
